FAERS Safety Report 23902200 (Version 1)
Quarter: 2024Q2

REPORT INFORMATION
  Report Type: Spontaneous
  Country: US (occurrence: None)
  Receive Date: 20240527
  Receipt Date: 20240527
  Transmission Date: 20240716
  Serious: No
  Sender: FDA-Public Use
  Company Number: US-ROCHE-3516997

PATIENT
  Sex: Male
  Weight: 65.83 kg

DRUGS (10)
  1. ACTEMRA [Suspect]
     Active Substance: TOCILIZUMAB
     Indication: Giant cell arteritis
     Dosage: 162MG PRE-FILLED SYRINGE EVERY 7-10 DAYS
     Route: 058
     Dates: start: 2021
  2. ACTEMRA [Suspect]
     Active Substance: TOCILIZUMAB
  3. LOVASTATIN [Suspect]
     Active Substance: LOVASTATIN
     Indication: Blood cholesterol increased
     Route: 065
  4. LIPITOR [Suspect]
     Active Substance: ATORVASTATIN CALCIUM
     Indication: Blood cholesterol increased
     Route: 065
  5. LOSARTAN [Concomitant]
     Active Substance: LOSARTAN
     Indication: Hypertension
     Route: 048
  6. AMLODIPINE [Concomitant]
     Active Substance: AMLODIPINE BESYLATE
     Indication: Hypertension
     Route: 048
  7. ZETIA [Concomitant]
     Active Substance: EZETIMIBE
     Indication: Blood cholesterol increased
     Route: 048
     Dates: start: 202401
  8. ALENDRONATE [Concomitant]
     Active Substance: ALENDRONATE SODIUM
     Indication: Osteopenia
     Route: 048
  9. ALBUTEROL [Concomitant]
     Active Substance: ALBUTEROL
     Indication: Wheezing
     Dates: start: 202303
  10. PREDNISONE [Concomitant]
     Active Substance: PREDNISONE
     Indication: Giant cell arteritis

REACTIONS (13)
  - Product complaint [Unknown]
  - Swelling [Recovered/Resolved]
  - Erythema [Recovered/Resolved]
  - Skin irritation [Recovered/Resolved]
  - Pain [Recovered/Resolved]
  - Low density lipoprotein increased [Not Recovered/Not Resolved]
  - Wheezing [Not Recovered/Not Resolved]
  - Upper respiratory tract infection [Recovered/Resolved]
  - Sinusitis bacterial [Recovered/Resolved]
  - Bronchitis [Recovered/Resolved]
  - Arthralgia [Recovering/Resolving]
  - Off label use [Unknown]
  - Product storage error [Unknown]

NARRATIVE: CASE EVENT DATE: 20220101
